FAERS Safety Report 5291026-7 (Version None)
Quarter: 2007Q2

REPORT INFORMATION
  Report Type: 
  Country: None (occurrence: None)
  Receive Date: 20070405
  Receipt Date: 20070405
  Transmission Date: 20071010
  Serious: No
  Sender: FDA-Public Use
  Company Number: None

PATIENT
  Age: 22 Year
  Sex: Female
  Weight: 49.4421 kg

DRUGS (1)
  1. ZONISAMIDE 100 MG SUN PHARMA [Suspect]
     Indication: EPILEPSY
     Dosage: 100 MG 1X PO
     Route: 048
     Dates: start: 20070305, end: 20070308

REACTIONS (6)
  - ABDOMINAL PAIN [None]
  - BALANCE DISORDER [None]
  - DEPRESSION [None]
  - DISTURBANCE IN ATTENTION [None]
  - NIGHTMARE [None]
  - TREMOR [None]
